FAERS Safety Report 9305208 (Version 1)
Quarter: 2013Q2

REPORT INFORMATION
  Report Type: Spontaneous
  Country: FR (occurrence: FR)
  Receive Date: 20130523
  Receipt Date: 20130523
  Transmission Date: 20140414
  Serious: Yes (Hospitalization)
  Sender: FDA-Public Use
  Company Number: FR-BAYER-2013-061123

PATIENT
  Age: 23 Year
  Sex: Female

DRUGS (3)
  1. ADALATE [Suspect]
     Indication: PREMATURE DELIVERY
     Dosage: DAILY DOSE 30 MG
     Route: 048
     Dates: start: 20120907
  2. LOXEN [Suspect]
     Indication: PREMATURE DELIVERY
     Dosage: UNK
     Route: 042
     Dates: start: 20120907, end: 20120908
  3. TRACTOCILE [Suspect]
     Dosage: 1 DF, QD
     Dates: start: 20120909, end: 20120910

REACTIONS (1)
  - Acute pulmonary oedema [Recovered/Resolved]
